FAERS Safety Report 16380494 (Version 5)
Quarter: 2019Q4

REPORT INFORMATION
  Report Type: Spontaneous
  Country: DE (occurrence: DE)
  Receive Date: 20190601
  Receipt Date: 20191121
  Transmission Date: 20200122
  Serious: Yes (Other)
  Sender: FDA-Public Use
  Company Number: DE-AUROBINDO-AUR-APL-2019-031628

PATIENT
  Age: 24 Year
  Sex: Female
  Weight: 74 kg

DRUGS (2)
  1. LEVETIRACETAM PUREN 1000MG [Suspect]
     Active Substance: LEVETIRACETAM
     Indication: EPILEPSY
     Dosage: 2000 MILLIGRAM, DAILY
     Route: 048
     Dates: start: 20130810
  2. LEVETIRACETAM PUREN 1000MG [Suspect]
     Active Substance: LEVETIRACETAM
     Dosage: 1000 MILLIGRAM, DAILY (1.5 YEARS)
     Route: 048
     Dates: start: 201802

REACTIONS (2)
  - Seizure [Not Recovered/Not Resolved]
  - Fatigue [Not Recovered/Not Resolved]

NARRATIVE: CASE EVENT DATE: 20140505
